FAERS Safety Report 14505579 (Version 2)
Quarter: 2018Q1

REPORT INFORMATION
  Report Type: Report from Study
  Country: US (occurrence: US)
  Receive Date: 20180208
  Receipt Date: 20180313
  Transmission Date: 20180509
  Serious: Yes (Death)
  Sender: FDA-Public Use
  Company Number: US-RETROPHIN, INC.-2018RTN00002

PATIENT
  Age: 8 Month
  Sex: Male
  Weight: 6.86 kg

DRUGS (1)
  1. CHOLIC ACID [Suspect]
     Active Substance: CHOLIC ACID
     Indication: CEREBROHEPATORENAL SYNDROME
     Dosage: 50 MG, 2X/DAY
     Dates: start: 20180102, end: 20180123

REACTIONS (4)
  - Weight gain poor [Not Recovered/Not Resolved]
  - Diarrhoea [Recovered/Resolved]
  - Feeding intolerance [Not Recovered/Not Resolved]
  - Death [Fatal]

NARRATIVE: CASE EVENT DATE: 201801
